FAERS Safety Report 6924388-2 (Version None)
Quarter: 2010Q3

REPORT INFORMATION
  Report Type: 
  Country: None (occurrence: None)
  Receive Date: 20100805
  Receipt Date: 20100723
  Transmission Date: 20110219
  Serious: Yes (Other)
  Sender: FDA-Public Use
  Company Number: AECAN201000064

PATIENT
  Age: 86 Year
  Sex: Female
  Weight: 48 kg

DRUGS (15)
  1. GAMUNEX [Suspect]
     Indication: PRIMARY IMMUNODEFICIENCY SYNDROME
     Dosage: 6 GM; 1X; IV, 1X; IV, 4 GM; 1X; IV, 20 GM; 1X; IV, IV
     Route: 042
     Dates: start: 20090422, end: 20090422
  2. GAMUNEX [Suspect]
     Indication: PRIMARY IMMUNODEFICIENCY SYNDROME
     Dosage: 6 GM; 1X; IV, 1X; IV, 4 GM; 1X; IV, 20 GM; 1X; IV, IV
     Route: 042
     Dates: start: 20090520, end: 20090520
  3. GAMUNEX [Suspect]
     Indication: PRIMARY IMMUNODEFICIENCY SYNDROME
     Dosage: 6 GM; 1X; IV, 1X; IV, 4 GM; 1X; IV, 20 GM; 1X; IV, IV
     Route: 042
     Dates: start: 20090715, end: 20090715
  4. GAMUNEX [Suspect]
     Indication: PRIMARY IMMUNODEFICIENCY SYNDROME
     Dosage: 6 GM; 1X; IV, 1X; IV, 4 GM; 1X; IV, 20 GM; 1X; IV, IV
     Route: 042
     Dates: start: 20091124, end: 20091124
  5. GAMUNEX [Suspect]
     Indication: PRIMARY IMMUNODEFICIENCY SYNDROME
     Dosage: 6 GM; 1X; IV, 1X; IV, 4 GM; 1X; IV, 20 GM; 1X; IV, IV
     Route: 042
     Dates: start: 20090617, end: 20100617
  6. GAMUNEX [Suspect]
     Indication: PRIMARY IMMUNODEFICIENCY SYNDROME
     Dosage: 6 GM; 1X; IV, 1X; IV, 4 GM; 1X; IV, 20 GM; 1X; IV, IV
     Route: 042
     Dates: start: 20040101
  7. GAMUNEX [Suspect]
  8. GAMUNEX [Suspect]
  9. IGIVNEX [Suspect]
     Indication: PRIMARY IMMUNODEFICIENCY SYNDROME
     Dosage: IV, 20 GM; IV
     Route: 042
     Dates: end: 20091124
  10. IGIVNEX [Suspect]
     Indication: PRIMARY IMMUNODEFICIENCY SYNDROME
     Dosage: IV, 20 GM; IV
     Route: 042
     Dates: start: 20100217, end: 20100217
  11. CALCIUM [Concomitant]
  12. BISPHOSPHONATES [Concomitant]
  13. VITAMIN D [Concomitant]
  14. BENADRYL [Concomitant]
  15. DEXAMETHASONE [Concomitant]

REACTIONS (17)
  - ABDOMINAL PAIN UPPER [None]
  - BACK PAIN [None]
  - BLOOD PRESSURE DECREASED [None]
  - BLOOD PRESSURE INCREASED [None]
  - CHEST PAIN [None]
  - CHILLS [None]
  - FACIAL PAIN [None]
  - FEELING COLD [None]
  - FLANK PAIN [None]
  - FLUSHING [None]
  - HYPERSENSITIVITY [None]
  - HYPERTENSION [None]
  - INFUSION RELATED REACTION [None]
  - PAROTID DUCT OBSTRUCTION [None]
  - PAROTID GLAND ENLARGEMENT [None]
  - SALIVARY GLAND PAIN [None]
  - TREMOR [None]
